FAERS Safety Report 7897209-1 (Version None)
Quarter: 2011Q4

REPORT INFORMATION
  Report Type: 
  Country: None (occurrence: None)
  Receive Date: 20111107
  Receipt Date: 20111103
  Transmission Date: 20120403
  Serious: No
  Sender: FDA-Public Use
  Company Number: US-TEVA-307778USA

PATIENT
  Sex: Female

DRUGS (5)
  1. ALPRAZOLAM [Concomitant]
  2. QUETIAPINE [Concomitant]
  3. PROAIR HFA [Suspect]
     Indication: ASTHMA
     Route: 055
  4. FLUOXETINE HCL [Concomitant]
  5. ATENOLOL [Concomitant]

REACTIONS (1)
  - BREATH ALCOHOL TEST POSITIVE [None]
